FAERS Safety Report 8818677 (Version 1)
Quarter: 2012Q4

REPORT INFORMATION
  Report Type: 
  Country: DE (occurrence: DE)
  Receive Date: 20121001
  Receipt Date: 20121001
  Transmission Date: 20130627
  Serious: Yes (Other)
  Sender: FDA-Public Use
  Company Number: GXKR2012DE003057

PATIENT

DRUGS (10)
  1. VENLAFAXINE [Suspect]
     Indication: DEPRESSION
     Dosage: 75 - 350 mg/day (gw 27- gw 35)
     Route: 048
  2. OLANZAPINE [Suspect]
     Indication: OBSESSIVE-COMPULSIVE DISORDER
     Dosage: 2.5 mg/day (gw 27 - gw 35)
     Route: 048
  3. LITHIUM CARBONATE [Suspect]
     Indication: OBSESSIVE-COMPULSIVE DISORDER
     Dosage: 225 mg/day (gw 30)
     Route: 048
  4. LITHIUM CARBONATE [Suspect]
     Dosage: 450 mg/day (gw 31)
  5. LITHIUM CARBONATE [Suspect]
     Dosage: 675 mg/day (gw 32)
  6. LITHIUM CARBONATE [Suspect]
     Dosage: 900 mg/day (gw 33 - 35)
  7. SERTRALINE [Concomitant]
     Indication: DEPRESSION
     Dosage: 50 mg/day (gw 18-20)
     Route: 048
  8. SERTRALINE [Concomitant]
     Dosage: 100 mg/day (gw 21-24)
  9. SERTRALINE [Concomitant]
     Dosage: 150 mg/day (gw 25-27)
  10. FOLIC ACID [Concomitant]
     Indication: PROPHYLAXIS OF NEURAL TUBE DEFECT
     Dosage: first trimester
     Route: 048

REACTIONS (4)
  - Foetal death [Recovered/Resolved]
  - Maternal exposure during pregnancy [Unknown]
  - Gastroenteritis norovirus [None]
  - Placental disorder [None]
